FAERS Safety Report 9935085 (Version 4)
Quarter: 2014Q2

REPORT INFORMATION
  Report Type: Report from Study
  Country: DE (occurrence: DE)
  Receive Date: 20140228
  Receipt Date: 20140421
  Transmission Date: 20141212
  Serious: Yes (Hospitalization)
  Sender: FDA-Public Use
  Company Number: DE-PFIZER INC-2014048825

PATIENT
  Age: 70 Year
  Sex: Male
  Weight: 80 kg

DRUGS (3)
  1. TORISEL [Suspect]
     Indication: RENAL CANCER
     Dosage: 25 MG, WEEKLY
     Route: 042
     Dates: start: 20140106
  2. MCP [Concomitant]
     Indication: PROPHYLAXIS
     Dosage: UNK
     Route: 042
     Dates: start: 20140106
  3. FENISTIL [Concomitant]
     Indication: PROPHYLAXIS
     Dosage: UNK
     Route: 042
     Dates: start: 20140106

REACTIONS (1)
  - Fatigue [Not Recovered/Not Resolved]
